FAERS Safety Report 11849927 (Version 2)
Quarter: 2016Q2

REPORT INFORMATION
  Report Type: Spontaneous
  Country: DK (occurrence: DK)
  Receive Date: 20151218
  Receipt Date: 20160520
  Transmission Date: 20160815
  Serious: Yes (Hospitalization, Disabling)
  Sender: FDA-Public Use
  Company Number: DK-PFIZER INC-2015437127

PATIENT
  Age: 62 Year
  Sex: Female

DRUGS (8)
  1. EPIRUBICIN ACTAVIS [Suspect]
     Active Substance: EPIRUBICIN
     Dosage: 180 MG
     Route: 042
     Dates: start: 20110525, end: 20110525
  2. EPIRUBICIN ACTAVIS [Suspect]
     Active Substance: EPIRUBICIN
     Dosage: UNK
     Dates: start: 20110617, end: 20110617
  3. CYCLOPHOSPHAMIDE. [Concomitant]
     Active Substance: CYCLOPHOSPHAMIDE
     Indication: BREAST CANCER
     Dosage: 1100 MG, 3 TIMES IN THE SUMMER 2011
     Route: 042
     Dates: start: 20110525
  4. EPIRUBICIN ACTAVIS [Suspect]
     Active Substance: EPIRUBICIN
     Dosage: UNK
     Dates: start: 20110715, end: 20110715
  5. NEULASTA [Concomitant]
     Active Substance: PEGFILGRASTIM
     Indication: BREAST CANCER
     Dosage: 6 MG, UNK
     Route: 058
     Dates: start: 2011
  6. EPIRUBICIN ACTAVIS [Suspect]
     Active Substance: EPIRUBICIN
     Indication: BREAST CANCER
     Dosage: 180 MG
     Route: 042
     Dates: start: 20110525, end: 20110525
  7. EPIRUBICIN ACTAVIS [Suspect]
     Active Substance: EPIRUBICIN
     Dosage: UNK
     Dates: start: 20110715, end: 20110715
  8. DOCETAXEL. [Concomitant]
     Active Substance: DOCETAXEL
     Indication: BREAST CANCER
     Dosage: 200 MG, UNK (HEREAFTER 3 TIMES.)
     Route: 042
     Dates: start: 2011

REACTIONS (8)
  - Cardiac failure [Not Recovered/Not Resolved]
  - Tricuspid valve incompetence [Not Recovered/Not Resolved]
  - Mitral valve incompetence [Not Recovered/Not Resolved]
  - Dyspnoea [Not Recovered/Not Resolved]
  - Dilatation ventricular [Not Recovered/Not Resolved]
  - Dilatation ventricular [Not Recovered/Not Resolved]
  - Ejection fraction decreased [Not Recovered/Not Resolved]
  - Right atrial dilatation [Not Recovered/Not Resolved]

NARRATIVE: CASE EVENT DATE: 20150613
